FAERS Safety Report 9860060 (Version 2)
Quarter: 2014Q1

REPORT INFORMATION
  Report Type: Spontaneous
  Country: JP (occurrence: JP)
  Receive Date: 20140131
  Receipt Date: 20140205
  Transmission Date: 20141002
  Serious: Yes (Life-Threatening, Hospitalization, Other)
  Sender: FDA-Public Use
  Company Number: JP-ROCHE-1339627

PATIENT
  Age: 36 Year
  Sex: Male

DRUGS (3)
  1. ACTEMRA [Suspect]
     Indication: STILL^S DISEASE ADULT ONSET
     Dosage: DOSAGE IS UNCERTAIN.
     Route: 041
  2. PREDNISOLONE [Suspect]
     Indication: STILL^S DISEASE ADULT ONSET
     Dosage: ABOUT 20MG
     Route: 048
  3. PREDNISOLONE [Suspect]
     Indication: STILL^S DISEASE ADULT ONSET
     Route: 048

REACTIONS (4)
  - Histiocytosis haematophagic [Recovering/Resolving]
  - Substance-induced mood disorder [Recovered/Resolved]
  - Suicide attempt [Unknown]
  - Off label use [Unknown]
